FAERS Safety Report 5231014-X (Version None)
Quarter: 2007Q1

REPORT INFORMATION
  Report Type: 
  Country: None (occurrence: None)
  Receive Date: 20070206
  Receipt Date: 20070131
  Transmission Date: 20070707
  Serious: Yes (Other)
  Sender: FDA-Public Use
  Company Number: GB-GLAXOSMITHKLINE-B0361342A

PATIENT
  Sex: Male

DRUGS (3)
  1. PAROXETINE HYDROCHLORIDE [Suspect]
     Indication: POST-TRAUMATIC STRESS DISORDER
     Dosage: 20MG PER DAY
     Route: 065
     Dates: start: 19990201, end: 20030101
  2. EPANUTIN [Concomitant]
     Route: 065
  3. TRAMADOL HCL [Concomitant]
     Route: 065

REACTIONS (5)
  - DRUG WITHDRAWAL SYNDROME [None]
  - MELAENA [None]
  - MOOD SWINGS [None]
  - PANIC ATTACK [None]
  - RECTAL HAEMORRHAGE [None]
